FAERS Safety Report 7302187-X (Version None)
Quarter: 2011Q1

REPORT INFORMATION
  Report Type: 
  Country: None (occurrence: None)
  Receive Date: 20110218
  Receipt Date: 20110214
  Transmission Date: 20110831
  Serious: Yes (Other)
  Sender: FDA-Public Use
  Company Number: JP-PFIZER INC-2011006374

PATIENT
  Age: 8 Year
  Sex: Female

DRUGS (6)
  1. METHOTREXATE [Suspect]
     Dosage: UNK
     Dates: start: 20090119
  2. RANDA [Suspect]
     Indication: BONE SARCOMA
     Dosage: UNK
     Dates: start: 20080728
  3. DOXORUBICIN HCL [Suspect]
     Indication: BONE SARCOMA
     Dosage: UNK
     Dates: start: 20080728
  4. DOXORUBICIN HCL [Suspect]
     Dosage: UNK
     Dates: start: 20090119
  5. RANDA [Suspect]
     Dosage: UNK
     Dates: start: 20090119
  6. METHOTREXATE [Suspect]
     Indication: BONE SARCOMA
     Dosage: UNK
     Dates: start: 20080728

REACTIONS (2)
  - LIVER DISORDER [None]
  - POSTOPERATIVE WOUND INFECTION [None]
